FAERS Safety Report 25230966 (Version 2)
Quarter: 2025Q2

REPORT INFORMATION
  Report Type: Spontaneous
  Country: CA (occurrence: CA)
  Receive Date: 20250423
  Receipt Date: 20250505
  Transmission Date: 20250717
  Serious: No
  Sender: PFIZER
  Company Number: CA-PFIZER INC-202500066376

PATIENT
  Age: 63 Year
  Sex: Male

DRUGS (1)
  1. ABRILADA [Suspect]
     Active Substance: ADALIMUMAB-AFZB
     Indication: Psoriatic arthropathy
     Route: 058
     Dates: start: 20240920

REACTIONS (4)
  - Drug ineffective [Unknown]
  - Device breakage [Unknown]
  - Device defective [Unknown]
  - Drug dose omission by device [Unknown]
